FAERS Safety Report 10642559 (Version 1)
Quarter: 2014Q4

REPORT INFORMATION
  Report Type: Spontaneous
  Country: US (occurrence: None)
  Receive Date: 20141208
  Receipt Date: 20141208
  Transmission Date: 20150529
  Serious: Yes (Other)
  Sender: FDA-Public Use
  Company Number: None

PATIENT
  Age: 50 Year
  Sex: Female
  Weight: 59.42 kg

DRUGS (1)
  1. CRESTOR [Suspect]
     Active Substance: ROSUVASTATIN CALCIUM
     Indication: BLOOD CHOLESTEROL INCREASED
     Route: 048
     Dates: start: 20141028, end: 20141126

REACTIONS (8)
  - Sleep disorder [None]
  - Renal mass [None]
  - Myalgia [None]
  - Blood cholesterol increased [None]
  - Vitamin D decreased [None]
  - Renal cyst [None]
  - Fall [None]
  - Back pain [None]

NARRATIVE: CASE EVENT DATE: 20141126
